FAERS Safety Report 5474718-6 (Version None)
Quarter: 2007Q3

REPORT INFORMATION
  Report Type: 
  Country: None (occurrence: None)
  Receive Date: 20070928
  Receipt Date: 20070917
  Transmission Date: 20080115
  Serious: Yes (Other)
  Sender: FDA-Public Use
  Company Number: NL-1163702

PATIENT

DRUGS (2)
  1. MIOSTAT [Suspect]
     Dosage: 0.5 AMPOULE INTRAOCULAR
     Route: 031
  2. NEOSTIGMINE(NEOSTIGMINE) [Concomitant]

REACTIONS (1)
  - BRADYCARDIA [None]
